FAERS Safety Report 8097092-8 (Version None)
Quarter: 2012Q1

REPORT INFORMATION
  Report Type: 
  Country: None (occurrence: None)
  Receive Date: 20120129
  Receipt Date: 20111207
  Transmission Date: 20120608
  Serious: Yes (Other)
  Sender: FDA-Public Use
  Company Number: US-ABBOTT-11P-163-0882001-00

PATIENT
  Age: 30 Year
  Sex: Female

DRUGS (3)
  1. HUMIRA [Suspect]
     Indication: PSORIATIC ARTHROPATHY
  2. ENBREL [Suspect]
     Indication: PSORIATIC ARTHROPATHY
  3. REMICADE [Suspect]
     Indication: PSORIATIC ARTHROPATHY
     Route: 042

REACTIONS (6)
  - RENAL CANCER [None]
  - DANDRUFF [None]
  - PAIN IN EXTREMITY [None]
  - ARTHRALGIA [None]
  - BACK PAIN [None]
  - PSORIATIC ARTHROPATHY [None]
